FAERS Safety Report 6572281-X (Version None)
Quarter: 2010Q1

REPORT INFORMATION
  Report Type: 
  Country: None (occurrence: None)
  Receive Date: 20100205
  Receipt Date: 20100202
  Transmission Date: 20100710
  Serious: Yes (Life-Threatening, Hospitalization, Other)
  Sender: FDA-Public Use
  Company Number: PHHY2009JP50083

PATIENT
  Sex: Male
  Weight: 70 kg

DRUGS (8)
  1. DIOVAN [Suspect]
     Indication: HYPERTENSION
     Dosage: 80 MG DAILY
     Route: 048
     Dates: start: 20050205, end: 20050327
  2. DIOVAN [Suspect]
     Dosage: 160 MG DAILY
     Route: 048
     Dates: start: 20050328, end: 20091108
  3. DIOVAN [Suspect]
     Dosage: 80 MG DAILY
     Route: 048
     Dates: start: 20091109, end: 20091127
  4. ARTIST [Suspect]
     Indication: HYPERTENSION
     Dosage: 10 MG, QD
     Route: 048
     Dates: start: 20080711, end: 20091127
  5. CALBLOCK [Concomitant]
     Route: 048
  6. VASOLAN [Concomitant]
     Indication: TACHYCARDIA
     Dosage: UNK
     Route: 048
     Dates: start: 20010822
  7. HERBESSER [Concomitant]
     Indication: TACHYCARDIA
     Dosage: UNK
     Route: 048
     Dates: start: 20010822
  8. CARDENALIN [Concomitant]
     Indication: HYPERTENSION
     Dosage: UNK
     Route: 048
     Dates: start: 20051107

REACTIONS (7)
  - BRADYCARDIA [None]
  - CARDIAC ARREST [None]
  - ELECTROCARDIOGRAM ABNORMAL [None]
  - HYPERKALAEMIA [None]
  - LOSS OF CONSCIOUSNESS [None]
  - RENAL DISORDER [None]
  - SYNCOPE [None]
